FAERS Safety Report 8407742-1 (Version None)
Quarter: 2012Q2

REPORT INFORMATION
  Report Type: 
  Country: None (occurrence: None)
  Receive Date: 20120604
  Receipt Date: 20120529
  Transmission Date: 20120825
  Serious: Yes (Other)
  Sender: FDA-Public Use
  Company Number: US-GLAXOSMITHKLINE-A0972204A

PATIENT
  Sex: Female

DRUGS (1)
  1. PROMACTA [Suspect]
     Dosage: 25MG UNKNOWN
     Route: 065
     Dates: end: 20120201

REACTIONS (2)
  - PLATELET DISORDER [None]
  - TREATMENT NONCOMPLIANCE [None]
